FAERS Safety Report 17651160 (Version 1)
Quarter: 2020Q2

REPORT INFORMATION
  Report Type: Spontaneous
  Country: NL (occurrence: NL)
  Receive Date: 20200409
  Receipt Date: 20200409
  Transmission Date: 20200713
  Serious: Yes (Other)
  Sender: FDA-Public Use
  Company Number: NL-AUROBINDO-AUR-APL-2020-017163

PATIENT
  Sex: Female

DRUGS (1)
  1. INDOMETACINE 25 MG CAPSULES [Suspect]
     Active Substance: INDOMETHACIN
     Indication: MIGRAINE
     Dosage: 25 MILLIGRAM, 3 TIMES A DAY
     Route: 065
     Dates: start: 20200303, end: 20200312

REACTIONS (3)
  - Hallucination, auditory [Recovering/Resolving]
  - Hallucination, visual [Recovered/Resolved]
  - Panic attack [Recovering/Resolving]
